FAERS Safety Report 9713525 (Version 2)
Quarter: 2014Q1

REPORT INFORMATION
  Report Type: Spontaneous
  Country: US (occurrence: US)
  Receive Date: 20131126
  Receipt Date: 20140103
  Transmission Date: 20141002
  Serious: No
  Sender: FDA-Public Use
  Company Number: US-PFIZER INC-2013336785

PATIENT
  Age: 72 Year
  Sex: Male

DRUGS (17)
  1. DEPO-TESTOSTERONE [Suspect]
     Indication: BLOOD TESTOSTERONE DECREASED
     Dosage: 200 MG, EVERY 3 WEEKS (FOR 5 MONTHS)
  2. DEPO-TESTOSTERONE [Suspect]
     Dosage: 200 MG, EVERY 3 WEEKS
     Route: 030
     Dates: start: 20121024
  3. DEPO-TESTOSTERONE [Suspect]
     Dosage: 200 MG, EVERY 3 WEEKS
     Route: 030
     Dates: start: 20121121
  4. DEPO-TESTOSTERONE [Suspect]
     Dosage: 200 MG, EVERY 3 WEEKS
     Route: 030
     Dates: start: 20121212
  5. DEPO-TESTOSTERONE [Suspect]
     Dosage: 200 MG, EVERY 3 WEEKS
     Route: 030
     Dates: start: 20130123
  6. DEPO-TESTOSTERONE [Suspect]
     Dosage: 200 MG, EVERY 3 WEEKS
     Route: 030
     Dates: start: 20130313
  7. DEPO-TESTOSTERONE [Suspect]
     Dosage: 200 MG, EVERY 3 WEEKS
     Route: 030
     Dates: start: 20130417
  8. DEPO-TESTOSTERONE [Suspect]
     Dosage: 200 MG, EVERY 3 WEEKS
     Route: 030
     Dates: start: 20130531
  9. DEPO-TESTOSTERONE [Suspect]
     Dosage: 200 MG, EVERY 3 WEEKS
     Route: 030
     Dates: start: 20130626
  10. DEPO-TESTOSTERONE [Suspect]
     Dosage: 200 MG, EVERY 3 WEEKS
     Route: 030
     Dates: start: 20130731
  11. DEPO-TESTOSTERONE [Suspect]
     Dosage: 200 MG, EVERY 3 WEEKS
     Route: 030
     Dates: start: 20130821
  12. DEPO-TESTOSTERONE [Suspect]
     Dosage: 200 MG, EVERY 3 WEEKS
     Route: 030
     Dates: start: 20130911
  13. DEPO-TESTOSTERONE [Suspect]
     Dosage: 200 MG, EVERY 3 WEEKS
     Route: 030
     Dates: start: 20131002
  14. DEPO-TESTOSTERONE [Suspect]
     Dosage: 200 MG, EVERY 3 WEEKS
     Route: 030
     Dates: start: 20131023
  15. DEPO-TESTOSTERONE [Suspect]
     Dosage: 200 MG, EVERY 3 WEEKS
     Route: 030
     Dates: start: 20131113
  16. VIAGRA [Concomitant]
     Indication: ERECTILE DYSFUNCTION
     Dosage: 100 MG, AS NEEDED
     Route: 048
  17. FORTEO [Concomitant]
     Indication: OSTEOPOROSIS
     Dosage: UNK, DAILY
     Dates: start: 20130628, end: 20131202

REACTIONS (3)
  - Product quality issue [Unknown]
  - Expired drug administered [Unknown]
  - Drug ineffective [Unknown]
